FAERS Safety Report 5876058-X (Version None)
Quarter: 2008Q3

REPORT INFORMATION
  Report Type: 
  Country: None (occurrence: None)
  Receive Date: 20080910
  Receipt Date: 20080829
  Transmission Date: 20090109
  Serious: Yes (Hospitalization)
  Sender: FDA-Public Use
  Company Number: ZA-ROCHE-584777

PATIENT
  Sex: Male

DRUGS (2)
  1. PEGASYS [Suspect]
     Route: 065
     Dates: start: 20080804, end: 20080801
  2. COPEGUS [Suspect]
     Route: 065
     Dates: start: 20080804, end: 20080801

REACTIONS (3)
  - CHEST PAIN [None]
  - LUNG DISORDER [None]
  - VASCULAR STENOSIS [None]
